FAERS Safety Report 9839049 (Version 2)
Quarter: 2014Q1

REPORT INFORMATION
  Report Type: Spontaneous
  Country: US (occurrence: US)
  Receive Date: 20140123
  Receipt Date: 20140123
  Transmission Date: 20141002
  Serious: Yes (Other)
  Sender: FDA-Public Use
  Company Number: CHPA2013US019028

PATIENT
  Age: 58 Year
  Sex: Female

DRUGS (4)
  1. EX-LAX MAX STR LAX PILLS SENNA [Suspect]
     Indication: CONSTIPATION
     Dosage: 1 TO 2 DF, UNK
     Route: 048
  2. EX-LAX MAX STR LAX PILLS SENNA [Suspect]
     Dosage: 2 TO 5 DF, QOD
     Route: 048
  3. ENEMA [Suspect]
     Indication: CONSTIPATION
  4. MAGNESIUM CITRATE [Suspect]
     Indication: CONSTIPATION

REACTIONS (8)
  - Impaired gastric emptying [Unknown]
  - Procedural complication [Unknown]
  - Constipation [Unknown]
  - Vomiting [Recovered/Resolved]
  - Nausea [Recovered/Resolved]
  - Underdose [Unknown]
  - Incorrect dose administered [Unknown]
  - Drug ineffective [Unknown]
